FAERS Safety Report 6924453-X (Version None)
Quarter: 2010Q3

REPORT INFORMATION
  Report Type: 
  Country: None (occurrence: None)
  Receive Date: 20100810
  Receipt Date: 20100727
  Transmission Date: 20110219
  Serious: Yes (Hospitalization, Other)
  Sender: FDA-Public Use
  Company Number: 653957

PATIENT
  Age: 65 Year
  Sex: Male

DRUGS (3)
  1. OXALIPLATIN [Suspect]
     Indication: COLORECTAL CANCER
     Dosage: 470 MG TOTAL DOSE, INTRAVENOUS DRIP
     Route: 041
  2. FOLINIC ACID [Concomitant]
  3. FLUOROURACIL [Concomitant]

REACTIONS (4)
  - HAEMODIALYSIS [None]
  - HAEMOLYSIS [None]
  - RENAL FAILURE ACUTE [None]
  - THROMBOCYTOPENIA [None]
